FAERS Safety Report 6147960-9 (Version None)
Quarter: 2009Q2

REPORT INFORMATION
  Report Type: 
  Country: None (occurrence: None)
  Receive Date: 20090408
  Receipt Date: 20090330
  Transmission Date: 20091009
  Serious: Yes (Other)
  Sender: FDA-Public Use
  Company Number: B0568942A

PATIENT
  Sex: Female
  Weight: 75 kg

DRUGS (2)
  1. NIQUITIN CQ 21MG [Suspect]
     Route: 062
     Dates: start: 20090226
  2. TABACUM [Concomitant]
     Dates: start: 20090226

REACTIONS (4)
  - DERMATITIS BULLOUS [None]
  - ERYTHEMA [None]
  - SKIN INFECTION [None]
  - THERMAL BURN [None]
